FAERS Safety Report 15497677 (Version 1)
Quarter: 2018Q4

REPORT INFORMATION
  Report Type: Spontaneous
  Country: US (occurrence: US)
  Receive Date: 20181005
  Receipt Date: 20181005
  Transmission Date: 20190205
  Serious: Yes (Hospitalization)
  Sender: FDA-Public Use
  Company Number: None

PATIENT
  Age: 84 Year
  Sex: Female
  Weight: 68.1 kg

DRUGS (10)
  1. AMLODIPINE [Concomitant]
     Active Substance: AMLODIPINE BESYLATE
  2. GABAPENTIN. [Concomitant]
     Active Substance: GABAPENTIN
  3. CITALOPRAM [Suspect]
     Active Substance: CITALOPRAM HYDROBROMIDE
     Indication: DEPRESSION
     Route: 048
  4. LISINORPRIL [Concomitant]
     Active Substance: LISINOPRIL
  5. ROSUVASTATIN. [Concomitant]
     Active Substance: ROSUVASTATIN
  6. LEVOTHYROXINE. [Concomitant]
     Active Substance: LEVOTHYROXINE
  7. WARFARIN [Concomitant]
     Active Substance: WARFARIN
  8. ATENOLOL. [Concomitant]
     Active Substance: ATENOLOL
  9. HYDROXOYCHOLROQUINE [Concomitant]
  10. CEFTRIAXONE. [Concomitant]
     Active Substance: CEFTRIAXONE

REACTIONS (4)
  - Inappropriate antidiuretic hormone secretion [None]
  - Urine osmolarity decreased [None]
  - Product use complaint [None]
  - Hyponatraemia [None]

NARRATIVE: CASE EVENT DATE: 20181004
